FAERS Safety Report 14552829 (Version 8)
Quarter: 2018Q4

REPORT INFORMATION
  Report Type: Report from Study
  Country: CA (occurrence: CA)
  Receive Date: 20180220
  Receipt Date: 20181221
  Transmission Date: 20190204
  Serious: Yes (Hospitalization, Other)
  Sender: FDA-Public Use
  Company Number: CA-JNJFOC-20180223620

PATIENT
  Age: 74 Year
  Sex: Female

DRUGS (2)
  1. SIMPONI [Suspect]
     Active Substance: GOLIMUMAB
     Indication: RHEUMATOID ARTHRITIS
     Route: 042
     Dates: start: 20140605
  2. SIMPONI [Suspect]
     Active Substance: GOLIMUMAB
     Indication: RHEUMATOID ARTHRITIS
     Route: 042

REACTIONS (10)
  - Urinary incontinence [Unknown]
  - Clostridium difficile infection [Recovered/Resolved]
  - Tooth abscess [Recovered/Resolved]
  - Diverticulitis [Recovered/Resolved]
  - Eye swelling [Recovered/Resolved]
  - Dysuria [Unknown]
  - Tooth infection [Not Recovered/Not Resolved]
  - Nocturia [Unknown]
  - Pollakiuria [Recovering/Resolving]
  - Dyspnoea [Unknown]

NARRATIVE: CASE EVENT DATE: 2018
